FAERS Safety Report 21193513 (Version 1)
Quarter: 2022Q3

REPORT INFORMATION
  Report Type: Spontaneous
  Country: US (occurrence: US)
  Receive Date: 20220810
  Receipt Date: 20220810
  Transmission Date: 20221026
  Serious: No
  Sender: FDA-Public Use
  Company Number: US-ELI_LILLY_AND_COMPANY-US202208004302

PATIENT
  Age: 32 Year
  Sex: Female

DRUGS (1)
  1. HUMULIN N [Suspect]
     Active Substance: INSULIN HUMAN
     Indication: Gestational diabetes
     Dosage: 10 U, DAILY
     Dates: start: 20220805

REACTIONS (1)
  - Maternal exposure during pregnancy [Not Recovered/Not Resolved]

NARRATIVE: CASE EVENT DATE: 20220805
